FAERS Safety Report 18360600 (Version 1)
Quarter: 2020Q4

REPORT INFORMATION
  Report Type: Report from Study
  Country: CN (occurrence: CN)
  Receive Date: 20201008
  Receipt Date: 20201008
  Transmission Date: 20210114
  Serious: Yes (Hospitalization, Other)
  Sender: FDA-Public Use
  Company Number: CN-AXELLIA-003393

PATIENT
  Age: 28 Year
  Sex: Female
  Weight: 50 kg

DRUGS (3)
  1. SUFENTANIL [Concomitant]
     Active Substance: SUFENTANIL
     Indication: INDUCTION OF ANAESTHESIA
     Dosage: 300 MG I.V. PUMP PER DAY
     Route: 042
     Dates: start: 20190501, end: 20190505
  2. POLYMYXIN B. [Suspect]
     Active Substance: POLYMYXIN B
     Indication: RENAL IMPAIRMENT
     Dosage: 100 MG/DAY
     Route: 041
     Dates: start: 20190503, end: 20190512
  3. METHYLPREDNISOLONE. [Concomitant]
     Active Substance: METHYLPREDNISOLONE
     Dosage: 80 MG I.V. DRIP PER DAY
     Route: 041
     Dates: start: 20190502, end: 20190505

REACTIONS (1)
  - Neurotoxicity [Unknown]
